FAERS Safety Report 8826120 (Version 1)
Quarter: 2012Q4

REPORT INFORMATION
  Report Type: 
  Country: ES (occurrence: ES)
  Receive Date: 20121005
  Receipt Date: 20121005
  Transmission Date: 20130627
  Serious: Yes (Hospitalization)
  Sender: FDA-Public Use
  Company Number: ES-NAPPMUNDI-GBR-2012-0011602

PATIENT
  Age: 68 Year
  Sex: Female

DRUGS (3)
  1. MST 60 CONTINUS, COMPRIMIDOS DE 60 MG [Suspect]
     Indication: CANCER PAIN
     Dosage: 60 mg, UNK
     Route: 048
     Dates: start: 20110601, end: 20120605
  2. SEVREDOL [Suspect]
     Indication: CANCER PAIN
     Dosage: 10 mg, UNK
     Route: 048
     Dates: start: 20101027, end: 20120605
  3. MATRIFEN [Concomitant]
     Indication: CANCER PAIN
     Dosage: 12 mcg, q1h
     Route: 062
     Dates: end: 20120601

REACTIONS (2)
  - Fall [Recovered/Resolved]
  - Hallucination, visual [Recovered/Resolved]
